FAERS Safety Report 23260000 (Version 1)
Quarter: 2023Q4

REPORT INFORMATION
  Report Type: Spontaneous
  Country: FR (occurrence: FR)
  Receive Date: 20231204
  Receipt Date: 20231204
  Transmission Date: 20240109
  Serious: Yes (Other)
  Sender: FDA-Public Use
  Company Number: None

PATIENT
  Age: 18 Year
  Sex: Female

DRUGS (2)
  1. TOPIRAMATE [Suspect]
     Active Substance: TOPIRAMATE
     Indication: Wrong product administered
     Route: 048
     Dates: start: 20231001, end: 20231003
  2. ESOMEPRAZOLE [Concomitant]
     Active Substance: ESOMEPRAZOLE
     Dosage: NOT ADMINISTERED

REACTIONS (5)
  - Foetal hypokinesia [Recovered/Resolved]
  - Chest pain [Recovered/Resolved]
  - Vertigo [Recovered/Resolved]
  - Limb discomfort [Recovered/Resolved]
  - Wrong product administered [Recovered/Resolved]

NARRATIVE: CASE EVENT DATE: 20231001
